FAERS Safety Report 16968993 (Version 4)
Quarter: 2020Q1

REPORT INFORMATION
  Report Type: Report from Study
  Country: US (occurrence: US)
  Receive Date: 20191029
  Receipt Date: 20200121
  Transmission Date: 20200409
  Serious: Yes (Hospitalization)
  Sender: FDA-Public Use
  Company Number: US-ROCHE-2444028

PATIENT
  Age: 63 Year
  Sex: Female
  Weight: 63.56 kg

DRUGS (1)
  1. OCREVUS [Suspect]
     Active Substance: OCRELIZUMAB
     Indication: RELAPSING-REMITTING MULTIPLE SCLEROSIS
     Dosage: DATE OF TREATMENT:07/NOV/2017, 24/APR/2018, 09/OCT/2018,26/MAR/2019
     Route: 042
     Dates: start: 20171024

REACTIONS (5)
  - Staphylococcal infection [Recovered/Resolved]
  - Memory impairment [Not Recovered/Not Resolved]
  - Asthenia [Not Recovered/Not Resolved]
  - White blood cell count decreased [Recovered/Resolved]
  - Gait disturbance [Not Recovered/Not Resolved]

NARRATIVE: CASE EVENT DATE: 201908
